FAERS Safety Report 5482045-6 (Version None)
Quarter: 2007Q4

REPORT INFORMATION
  Report Type: 
  Country: None (occurrence: None)
  Receive Date: 20071004
  Receipt Date: 20070920
  Transmission Date: 20080405
  Serious: Yes (Other)
  Sender: FDA-Public Use
  Company Number: 2007RR-10221

PATIENT
  Sex: Female

DRUGS (4)
  1. PAROXETINE [Suspect]
     Indication: DRUG USE FOR UNKNOWN INDICATION
     Dosage: ORAL
     Route: 048
     Dates: start: 19991112
  2. FLUOXETINE [Suspect]
     Indication: DEPRESSION
  3. SERTRALINE [Suspect]
  4. CIPRALEX (ESCITALOPRAM OXALATE) [Suspect]

REACTIONS (9)
  - DRUG INTOLERANCE [None]
  - DRUG WITHDRAWAL SYNDROME [None]
  - DYSTONIA [None]
  - EYE DISORDER [None]
  - INAPPROPRIATE SCHEDULE OF DRUG ADMINISTRATION [None]
  - INTENTIONAL OVERDOSE [None]
  - REACTION TO DRUG EXCIPIENTS [None]
  - SELF-INJURIOUS IDEATION [None]
  - SUICIDAL IDEATION [None]
